FAERS Safety Report 5325313-0 (Version None)
Quarter: 2007Q2

REPORT INFORMATION
  Report Type: 
  Country: None (occurrence: None)
  Receive Date: 20070515
  Receipt Date: 20070510
  Transmission Date: 20071010
  Serious: Yes (Disabling, Other)
  Sender: FDA-Public Use
  Company Number: US-PURDUE-USA_2007_0027323

PATIENT
  Sex: Male

DRUGS (1)
  1. OXYCONTIN [Suspect]
     Indication: BACK PAIN
     Dosage: UNK, UNK

REACTIONS (4)
  - BRAIN DAMAGE [None]
  - CEREBROVASCULAR ACCIDENT [None]
  - DEPENDENCE [None]
  - PHYSICAL DISABILITY [None]
